FAERS Safety Report 7288559 (Version 2)
Quarter: 2013Q4

REPORT INFORMATION
  Report Type: Spontaneous
  Country: US (occurrence: None)
  Receive Date: 20100202
  Receipt Date: 20131226
  Transmission Date: 20140711
  Serious: Yes (Other)
  Sender: FDA-Public Use
  Company Number: 2010S1000266

PATIENT
  Sex: Male

DRUGS (5)
  1. SODIUM PHOSPHATE [Suspect]
     Indication: PRODUCT USED FOR UNKNOWN INDICATION
     Dosage: ; PO
     Route: 048
     Dates: start: 20080925
  2. PHOSPHO-SODA [Suspect]
  3. PANTOPRAZOLE (PANTOPRAZOLE) [Concomitant]
  4. ASPIRIN (ACETYLSALICYLIC ACID) [Concomitant]
  5. CRESTOR (ROSUVASTATIN) [Concomitant]

REACTIONS (1)
  - Renal failure chronic [None]
